FAERS Safety Report 9033657 (Version 1)
Quarter: 2013Q1

REPORT INFORMATION
  Report Type: Spontaneous
  Country: US (occurrence: US)
  Receive Date: 20130128
  Receipt Date: 20130128
  Transmission Date: 20140127
  Serious: Yes (Hospitalization, Other)
  Sender: FDA-Public Use
  Company Number: US-AMGEN-USASP2012080909

PATIENT
  Sex: Female

DRUGS (1)
  1. ENBREL [Suspect]
     Indication: RHEUMATOID ARTHRITIS
     Dosage: 50 MG, QWK
     Dates: start: 20110909

REACTIONS (7)
  - Haemorrhage [Recovered/Resolved]
  - Hepatic cirrhosis [Not Recovered/Not Resolved]
  - Road traffic accident [Recovered/Resolved]
  - Gastric disorder [Recovered/Resolved]
  - Knee operation [Recovered/Resolved]
  - Biopsy liver [Recovered/Resolved]
  - Colonoscopy [Recovered/Resolved]
